FAERS Safety Report 9380477 (Version 1)
Quarter: 2013Q3

REPORT INFORMATION
  Report Type: Report from Study
  Country: US (occurrence: US)
  Receive Date: 20130702
  Receipt Date: 20130702
  Transmission Date: 20140515
  Serious: Yes (Hospitalization)
  Sender: FDA-Public Use
  Company Number: US-ACTELION-A-US2013-77175

PATIENT
  Age: 56 Year
  Sex: Female

DRUGS (5)
  1. TRACLEER [Suspect]
     Indication: PULMONARY ARTERIAL HYPERTENSION
     Dosage: UNK
     Route: 048
  2. VELETRI [Suspect]
     Indication: PULMONARY ARTERIAL HYPERTENSION
     Dosage: 15 NG/KG, PER MIN
     Route: 042
     Dates: start: 20120912
  3. COUMADIN [Concomitant]
  4. ADCIRCA [Concomitant]
  5. SILDENAFIL [Concomitant]

REACTIONS (9)
  - Chronic obstructive pulmonary disease [Unknown]
  - Pneumonia [Unknown]
  - Cardiac failure congestive [Unknown]
  - Dyspnoea [Unknown]
  - Malaise [Unknown]
  - Catheter site erythema [Unknown]
  - Catheter site swelling [Unknown]
  - Catheter site pain [Unknown]
  - Catheter site pruritus [Unknown]
